FAERS Safety Report 25521062 (Version 1)
Quarter: 2025Q3

REPORT INFORMATION
  Report Type: Spontaneous
  Country: CN (occurrence: CN)
  Receive Date: 20250705
  Receipt Date: 20250705
  Transmission Date: 20251020
  Serious: Yes (Hospitalization)
  Sender: MACLEODS
  Company Number: CN-MLMSERVICE-20250618-PI546546-00091-1

PATIENT

DRUGS (3)
  1. CELECOXIB [Suspect]
     Active Substance: CELECOXIB
     Indication: Back pain
     Route: 048
     Dates: start: 2022, end: 2022
  2. DICLOFENAC DIETHYLAMINE [Concomitant]
     Active Substance: DICLOFENAC DIETHYLAMINE
     Indication: Product used for unknown indication
     Route: 065
     Dates: start: 2022, end: 2022
  3. DICLOFENAC DIETHYLAMINE [Concomitant]
     Active Substance: DICLOFENAC DIETHYLAMINE
     Route: 065
     Dates: start: 2022, end: 2022

REACTIONS (1)
  - Drug-induced liver injury [Recovered/Resolved]

NARRATIVE: CASE EVENT DATE: 20220401
